FAERS Safety Report 4719238-9 (Version None)
Quarter: 2005Q3

REPORT INFORMATION
  Report Type: 
  Country: None (occurrence: None)
  Receive Date: 20050719
  Receipt Date: 20050706
  Transmission Date: 20060218
  Serious: Yes (Hospitalization, Other)
  Sender: FDA-Public Use
  Company Number: 2005071815

PATIENT
  Age: 65 Year
  Sex: Male

DRUGS (7)
  1. ACCUPRIL [Suspect]
     Indication: HYPERTENSION
     Dosage: 20 MG (20 MG, 1 IN 1 ), ORAL
     Route: 048
     Dates: start: 20040601
  2. WARFARIN SODIUM [Suspect]
     Indication: ILL-DEFINED DISORDER
     Dosage: ORAL
     Route: 048
     Dates: start: 20050401
  3. METADON (METHADONE HYDROCHLORIDE) [Concomitant]
  4. FRADEMICINA (LINCOMYCIN) [Concomitant]
  5. MORPHINE [Concomitant]
  6. NEURONTIN [Concomitant]
  7. ATENOLOL [Concomitant]

REACTIONS (21)
  - BLOOD PRESSURE INCREASED [None]
  - COAGULOPATHY [None]
  - DRUG INEFFECTIVE [None]
  - DYSPHONIA [None]
  - ERYTHEMA [None]
  - FUNGAL INFECTION [None]
  - GASTRITIS [None]
  - HAEMORRHAGE [None]
  - HIATUS HERNIA [None]
  - LIMB INJURY [None]
  - LOCALISED INFECTION [None]
  - MEDICAL DEVICE COMPLICATION [None]
  - OEDEMA PERIPHERAL [None]
  - PHARYNGITIS STREPTOCOCCAL [None]
  - PROCEDURAL COMPLICATION [None]
  - PROSTATE INFECTION [None]
  - PROSTATIC SPECIFIC ANTIGEN INCREASED [None]
  - SKIN DISCOLOURATION [None]
  - SPEECH DISORDER [None]
  - STREPTOCOCCAL INFECTION [None]
  - THROMBOSIS [None]
